FAERS Safety Report 14820495 (Version 1)
Quarter: 2018Q2

REPORT INFORMATION
  Report Type: Spontaneous
  Country: US (occurrence: US)
  Receive Date: 20180401
  Receipt Date: 20180401
  Transmission Date: 20180711
  Serious: No
  Sender: FDA-Public Use
  Company Number: None

PATIENT
  Age: 71 Year
  Sex: Male

DRUGS (1)
  1. ATIVAN [Suspect]
     Active Substance: LORAZEPAM

REACTIONS (4)
  - Disorientation [None]
  - Ataxia [None]
  - Confusional state [None]
  - Hallucinations, mixed [None]

NARRATIVE: CASE EVENT DATE: 20180331
